FAERS Safety Report 4408730-2 (Version None)
Quarter: 2004Q3

REPORT INFORMATION
  Report Type: 
  Country: None (occurrence: None)
  Receive Date: 20040727
  Receipt Date: 20040504
  Transmission Date: 20050211
  Serious: Yes (Life-Threatening, Hospitalization)
  Sender: FDA-Public Use
  Company Number: 200414645GDDC

PATIENT
  Age: 61 Year
  Sex: Female

DRUGS (4)
  1. ARAVA [Suspect]
     Indication: RHEUMATOID ARTHRITIS
     Route: 048
     Dates: start: 20020115, end: 20040315
  2. METHOTREXATE [Concomitant]
     Dosage: DOSE: UNK
  3. SULFASALAZINE [Concomitant]
     Dosage: DOSE: UNK
  4. PREDNISONE [Concomitant]

REACTIONS (2)
  - GASTROINTESTINAL HAEMORRHAGE [None]
  - PULMONARY OEDEMA [None]
